FAERS Safety Report 8237804-3 (Version None)
Quarter: 2012Q1

REPORT INFORMATION
  Report Type: 
  Country: None (occurrence: None)
  Receive Date: 20120326
  Receipt Date: 20120315
  Transmission Date: 20120608
  Serious: Yes (Hospitalization)
  Sender: FDA-Public Use
  Company Number: 2012SP014351

PATIENT
  Age: 77 Year
  Sex: Female

DRUGS (3)
  1. DULERA ORAL INHALATION [Suspect]
     Indication: ASTHMA
     Dosage: INH
     Route: 055
  2. ALBUTEROL [Concomitant]
  3. BUDESONIDE [Concomitant]

REACTIONS (1)
  - GLYCOSYLATED HAEMOGLOBIN INCREASED [None]
